FAERS Safety Report 22610628 (Version 1)
Quarter: 2023Q2

REPORT INFORMATION
  Report Type: Spontaneous
  Country: CN (occurrence: CN)
  Receive Date: 20230616
  Receipt Date: 20230616
  Transmission Date: 20230721
  Serious: Yes (Hospitalization, Other)
  Sender: FDA-Public Use
  Company Number: None

PATIENT
  Age: 48 Year
  Sex: Female
  Weight: 50.5 kg

DRUGS (10)
  1. CYCLOPHOSPHAMIDE [Suspect]
     Active Substance: CYCLOPHOSPHAMIDE
     Indication: Breast cancer female
     Dosage: START AT 09:01, 860 MG, QD, DILUTED WITH 100 ML OF 0.9% SODIUM CHLORIDE, 4TH CYCLE, AS A PART OF EC
     Route: 041
     Dates: start: 20230513, end: 20230513
  2. CYCLOPHOSPHAMIDE [Suspect]
     Active Substance: CYCLOPHOSPHAMIDE
     Indication: Chemotherapy
  3. EPIRUBICIN [Suspect]
     Active Substance: EPIRUBICIN
     Indication: Breast cancer female
     Dosage: START AT 9:01, 130 MG, QD, DILUTED WITH 100 ML OF 0.9% SODIUM CHLORIDE, 4TH CYCLE, AS A PART OF EC R
     Route: 041
     Dates: start: 20230513, end: 20230513
  4. EPIRUBICIN [Suspect]
     Active Substance: EPIRUBICIN
     Indication: Chemotherapy
  5. SODIUM CHLORIDE [Suspect]
     Active Substance: SODIUM CHLORIDE
     Indication: Breast cancer female
     Dosage: START AT 9:01, 100 ML, QD, USED TO DILUTE 860 MG OF CYCLOPHOSPHAMIDE
     Route: 041
     Dates: start: 20230513, end: 20230513
  6. SODIUM CHLORIDE [Suspect]
     Active Substance: SODIUM CHLORIDE
     Indication: Chemotherapy
     Dosage: START AT 9:01, 100 ML, QD, USED TO DILUTE 130 MG OF EPIRUBICIN
     Route: 041
     Dates: start: 20230513, end: 20230513
  7. TROPISETRON [Concomitant]
     Active Substance: TROPISETRON
     Dosage: START AT 8:22, 5 MG, DILUTED WITH 5 ML OF 0.9% SODIUM CHLORIDE
     Route: 065
     Dates: start: 20230513
  8. TROPISETRON [Concomitant]
     Active Substance: TROPISETRON
     Dosage: 5 MG, DILUTED WITH 5 ML OF 0.9% SODIUM CHLORIDE (AFTER CHEMOTHERAPY)
     Route: 042
     Dates: start: 20230513
  9. DEXAMETHASONE [Concomitant]
     Active Substance: DEXAMETHASONE
     Indication: Prophylaxis of nausea and vomiting
     Dosage: 5 MG
     Route: 042
     Dates: start: 20230513
  10. OMEPRAZOLE SODIUM [Concomitant]
     Active Substance: OMEPRAZOLE SODIUM
     Indication: Prophylaxis
     Dosage: 40 MG, DILUTED WITH 100 ML 0.9% SODIUM CHLOIRDE
     Route: 065
     Dates: start: 20230513

REACTIONS (7)
  - Haematemesis [Recovering/Resolving]
  - Nausea [Recovering/Resolving]
  - White blood cell count decreased [Recovering/Resolving]
  - Neutrophil count decreased [Recovering/Resolving]
  - Upper gastrointestinal haemorrhage [Recovering/Resolving]
  - Discomfort [Recovering/Resolving]
  - Insomnia [Unknown]

NARRATIVE: CASE EVENT DATE: 20230513
